FAERS Safety Report 10389668 (Version 3)
Quarter: 2015Q1

REPORT INFORMATION
  Report Type: Report from Study
  Country: US (occurrence: US)
  Receive Date: 20140818
  Receipt Date: 20150127
  Transmission Date: 20150720
  Serious: Yes (Hospitalization)
  Sender: FDA-Public Use
  Company Number: US-ROCHE-1449400

PATIENT
  Age: 59 Year
  Sex: Female
  Weight: 54 kg

DRUGS (12)
  1. LORATADINE. [Concomitant]
     Active Substance: LORATADINE
  2. CALCIUM CARBONATE. [Concomitant]
     Active Substance: CALCIUM CARBONATE
  3. FLUTICASONE PROPIONATE. [Concomitant]
     Active Substance: FLUTICASONE PROPIONATE
  4. BEVACIZUMAB [Suspect]
     Active Substance: BEVACIZUMAB
     Indication: GLIOBLASTOMA
     Dosage: LAST DOSE PRIOR TO SAE ON 05/AUG/2014.
     Route: 042
     Dates: start: 20140513
  5. BLINDED RINDOPEPIMUT [Suspect]
     Active Substance: RINDOPEPIMUT
     Indication: GLIOBLASTOMA
     Dosage: LAST DOSE PRIOR TO SAE ON 05/AUG/2014.
     Route: 065
     Dates: start: 20140513
  6. GUAIFENESIN/PSEUDOEPHEDRINE HYDROCHLORIDE [Concomitant]
  7. ALPRAZOLAM. [Concomitant]
     Active Substance: ALPRAZOLAM
  8. PANTOPRAZOLE SODIUM [Concomitant]
     Active Substance: PANTOPRAZOLE SODIUM
  9. BLINDED RHU GM-CSF [Suspect]
     Active Substance: GRANULOCYTE-MACROPHAGE COLONY-STIMULATING FACTOR
     Indication: GLIOBLASTOMA
     Dosage: LAST DOSE PRIOR TO SAE ON 05/AUG/2014.
     Route: 065
     Dates: start: 20140513
  10. ACETAMINOPHEN. [Concomitant]
     Active Substance: ACETAMINOPHEN
  11. MONTELUKAST SODIUM. [Concomitant]
     Active Substance: MONTELUKAST SODIUM
  12. FAMOTIDINE. [Concomitant]
     Active Substance: FAMOTIDINE

REACTIONS (1)
  - Aortic dissection [Recovered/Resolved with Sequelae]

NARRATIVE: CASE EVENT DATE: 20140806
